FAERS Safety Report 24322494 (Version 1)
Quarter: 2024Q3

REPORT INFORMATION
  Report Type: Spontaneous
  Country: US (occurrence: US)
  Receive Date: 20240916
  Receipt Date: 20240916
  Transmission Date: 20241016
  Serious: Yes (Other)
  Sender: JOHNSON AND JOHNSON
  Company Number: US-JNJFOC-20240907508

PATIENT
  Sex: Female

DRUGS (1)
  1. AVEENO BABY DAILY MOISTURE [Suspect]
     Active Substance: DIMETHICONE
     Indication: Product used for unknown indication
     Route: 061

REACTIONS (2)
  - Autoimmune disorder [Unknown]
  - Application site urticaria [Unknown]
